FAERS Safety Report 7082321-X (Version None)
Quarter: 2010Q4

REPORT INFORMATION
  Report Type: 
  Country: None (occurrence: None)
  Receive Date: 20101104
  Receipt Date: 20101026
  Transmission Date: 20110411
  Serious: No
  Sender: FDA-Public Use
  Company Number: US-BIOGENIDEC-2010BI013591

PATIENT
  Age: 25 Year
  Sex: Female

DRUGS (1)
  1. TYSABRI [Suspect]
     Indication: MULTIPLE SCLEROSIS
     Route: 042
     Dates: start: 20091120

REACTIONS (7)
  - ABDOMINAL PAIN UPPER [None]
  - DYSMENORRHOEA [None]
  - INSOMNIA [None]
  - MENSTRUATION IRREGULAR [None]
  - PAIN [None]
  - POLYMENORRHOEA [None]
  - VAGINITIS BACTERIAL [None]
